FAERS Safety Report 17560851 (Version 1)
Quarter: 2020Q1

REPORT INFORMATION
  Report Type: Spontaneous
  Country: None (occurrence: None)
  Receive Date: 20200319
  Receipt Date: 20200319
  Transmission Date: 20200409
  Serious: Yes (Other)
  Sender: FDA-Public Use
  Company Number: MICRO LABS LIMITED-ML2020-00735

PATIENT
  Age: 51 Year
  Sex: Male

DRUGS (2)
  1. METHAZOLAMIDE. [Suspect]
     Active Substance: METHAZOLAMIDE
     Indication: DIABETIC RETINAL OEDEMA
     Route: 048
  2. METFORMIN HYDROCHLORIDE. [Concomitant]
     Active Substance: METFORMIN HYDROCHLORIDE
     Indication: DIABETES MELLITUS

REACTIONS (3)
  - Angle closure glaucoma [Recovering/Resolving]
  - Acute myopia [Recovering/Resolving]
  - Choroidal detachment [Recovering/Resolving]
